FAERS Safety Report 13833724 (Version 1)
Quarter: 2017Q3

REPORT INFORMATION
  Report Type: Spontaneous
  Country: US (occurrence: US)
  Receive Date: 20170803
  Receipt Date: 20170803
  Transmission Date: 20171127
  Serious: No
  Sender: FDA-Public Use
  Company Number: None

PATIENT
  Age: 42 Year
  Sex: Female

DRUGS (1)
  1. MYCOPHENOLIC TAB 360MG DR [Suspect]
     Active Substance: MYCOPHENOLIC ACID

REACTIONS (4)
  - Diarrhoea [None]
  - Feeling abnormal [None]
  - Blood creatinine increased [None]
  - Presyncope [None]

NARRATIVE: CASE EVENT DATE: 20170803
